FAERS Safety Report 8555895-7 (Version None)
Quarter: 2012Q3

REPORT INFORMATION
  Report Type: 
  Country: None (occurrence: None)
  Receive Date: 20120801
  Receipt Date: 20120720
  Transmission Date: 20120928
  Serious: No
  Sender: FDA-Public Use
  Company Number: US-BIOGENIDEC-2012BI024710

PATIENT
  Sex: Male

DRUGS (1)
  1. AVONEX [Suspect]
     Indication: MULTIPLE SCLEROSIS
     Route: 030
     Dates: start: 20120216

REACTIONS (10)
  - ROTATOR CUFF SYNDROME [None]
  - PYREXIA [None]
  - EXOSTOSIS [None]
  - MIGRAINE [None]
  - INCISION SITE INFECTION [None]
  - PURULENT DISCHARGE [None]
  - ROTATOR CUFF REPAIR [None]
  - ASTHENIA [None]
  - HYPERSOMNIA [None]
  - INFLUENZA LIKE ILLNESS [None]
